FAERS Safety Report 12041356 (Version 1)
Quarter: 2016Q1

REPORT INFORMATION
  Report Type: Spontaneous
  Country: US (occurrence: US)
  Receive Date: 20160208
  Receipt Date: 20160208
  Transmission Date: 20160526
  Serious: No
  Sender: FDA-Public Use
  Company Number: US-PFIZER INC-2016060477

PATIENT
  Age: 32 Year
  Sex: Female
  Weight: 83.91 kg

DRUGS (11)
  1. TRILEPTAL [Concomitant]
     Active Substance: OXCARBAZEPINE
     Indication: MOOD SWINGS
     Dosage: 300 MG, 1X/DAY(ONE AT BEDTIME)
     Route: 048
     Dates: start: 2008
  2. XANAX [Concomitant]
     Active Substance: ALPRAZOLAM
     Indication: ANXIETY DISORDER
     Dosage: 1 MG, 2X/DAY
     Route: 048
     Dates: start: 2000
  3. VALIUM [Concomitant]
     Active Substance: DIAZEPAM
     Indication: POST-TRAUMATIC STRESS DISORDER
  4. NIRAVAM [Concomitant]
     Active Substance: ALPRAZOLAM
     Indication: ANXIETY
     Dosage: 2MG ODT (DISSOLVING), TAKE WHEN NEEDED
     Route: 048
     Dates: start: 2008
  5. OMEPRAZOLE. [Concomitant]
     Active Substance: OMEPRAZOLE
     Indication: DYSPEPSIA
     Dosage: 20 MG, 1X/DAY IN THE MORNING
     Route: 048
     Dates: start: 201510, end: 201512
  6. LYRICA [Suspect]
     Active Substance: PREGABALIN
     Indication: FIBROMYALGIA
     Dosage: 75 MG, 1X/DAY AT BEDTIME
     Route: 048
     Dates: start: 201505, end: 20160101
  7. VALIUM [Concomitant]
     Active Substance: DIAZEPAM
     Indication: ANXIETY DISORDER
     Dosage: 5 MG, 2X/DAY
     Route: 048
     Dates: start: 2008
  8. AMBIEN [Concomitant]
     Active Substance: ZOLPIDEM TARTRATE
     Indication: INSOMNIA
     Dosage: UNK, 1X/DAY AT NIGHT
     Dates: start: 2008, end: 201507
  9. LISINOPRIL. [Concomitant]
     Active Substance: LISINOPRIL
     Indication: HYPERTENSION
     Dosage: 20 MG, 1X/DAY(ONE IN THE MORNING )
     Route: 048
     Dates: start: 201507
  10. OMEPRAZOLE. [Concomitant]
     Active Substance: OMEPRAZOLE
     Indication: GASTROOESOPHAGEAL REFLUX DISEASE
  11. PHENTERMINE. [Concomitant]
     Active Substance: PHENTERMINE
     Indication: OVERWEIGHT
     Dosage: 25 MG, 1X/DAY EVERY MORNING
     Route: 048
     Dates: start: 201510, end: 201512

REACTIONS (4)
  - Amnesia [Not Recovered/Not Resolved]
  - Somnolence [Not Recovered/Not Resolved]
  - Therapeutic response unexpected [Not Recovered/Not Resolved]
  - Pre-existing condition improved [Not Recovered/Not Resolved]

NARRATIVE: CASE EVENT DATE: 201506
